FAERS Safety Report 7571451-1 (Version None)
Quarter: 2011Q2

REPORT INFORMATION
  Report Type: 
  Country: None (occurrence: None)
  Receive Date: 20110624
  Receipt Date: 20110616
  Transmission Date: 20111010
  Serious: Yes (Hospitalization)
  Sender: FDA-Public Use
  Company Number: DE-JNJFOC-20110607948

PATIENT
  Age: 17 Year
  Sex: Female

DRUGS (3)
  1. LEVOFLOXACIN [Suspect]
     Indication: BRONCHITIS
     Route: 048
     Dates: start: 20110126, end: 20110201
  2. ISOTRETINOIN [Concomitant]
     Indication: ACNE
     Route: 065
  3. IBUPROFEN [Concomitant]
     Indication: MIGRAINE
     Route: 065

REACTIONS (5)
  - HYPERHIDROSIS [None]
  - RELAPSING FEVER [None]
  - BLOOD DISORDER [None]
  - FATIGUE [None]
  - EOSINOPHILIA [None]
